FAERS Safety Report 14940586 (Version 2)
Quarter: 2019Q3

REPORT INFORMATION
  Report Type: Spontaneous
  Country: DE (occurrence: DE)
  Receive Date: 20180525
  Receipt Date: 20190819
  Transmission Date: 20191004
  Serious: Yes (Hospitalization)
  Sender: FDA-Public Use
  Company Number: DE-MYLANLABS-2018M1033691

PATIENT
  Age: 63 Year
  Sex: Male
  Weight: 98 kg

DRUGS (2)
  1. AMIODARONE [Suspect]
     Active Substance: AMIODARONE
     Indication: ATRIAL FIBRILLATION
     Dosage: 200 MG, QD
     Route: 065
  2. AMIODARONE [Suspect]
     Active Substance: AMIODARONE
     Indication: TACHYARRHYTHMIA

REACTIONS (7)
  - Condition aggravated [Unknown]
  - Skin hyperpigmentation [Unknown]
  - Dyspnoea [Unknown]
  - Hypertensive crisis [Unknown]
  - Photosensitivity reaction [Unknown]
  - Cardiac failure [Unknown]
  - Cyanosis [Unknown]
